FAERS Safety Report 14625338 (Version 9)
Quarter: 2020Q2

REPORT INFORMATION
  Report Type: Spontaneous
  Country: US (occurrence: US)
  Receive Date: 20180312
  Receipt Date: 20200422
  Transmission Date: 20200713
  Serious: No
  Sender: FDA-Public Use
  Company Number: US-PFIZER INC-2018096230

PATIENT
  Age: 74 Year
  Sex: Female

DRUGS (2)
  1. LETROZOLE. [Concomitant]
     Active Substance: LETROZOLE
     Dosage: UNK
  2. IBRANCE [Suspect]
     Active Substance: PALBOCICLIB
     Indication: BREAST CANCER METASTATIC
     Dosage: UNK

REACTIONS (8)
  - White blood cell count decreased [Not Recovered/Not Resolved]
  - Bone pain [Recovered/Resolved]
  - Fluid intake reduced [Unknown]
  - Pruritus [Unknown]
  - Feeling abnormal [Unknown]
  - Pain [Unknown]
  - Alopecia [Unknown]
  - Neoplasm progression [Unknown]
